FAERS Safety Report 23878734 (Version 1)
Quarter: 2024Q2

REPORT INFORMATION
  Report Type: Spontaneous
  Country: US (occurrence: US)
  Receive Date: 20240521
  Receipt Date: 20240521
  Transmission Date: 20240716
  Serious: Yes (Other)
  Sender: FDA-Public Use
  Company Number: US-JNJFOC-20231229037

PATIENT

DRUGS (1)
  1. TECVAYLI [Suspect]
     Active Substance: TECLISTAMAB-CQYV
     Indication: Plasma cell myeloma refractory
     Route: 065

REACTIONS (6)
  - Cytokine release syndrome [Unknown]
  - Immune effector cell-associated neurotoxicity syndrome [Unknown]
  - Thrombocytopenia [Unknown]
  - Neutropenia [Unknown]
  - Anaemia [Unknown]
  - Infection [Unknown]
